FAERS Safety Report 8536873-0 (Version None)
Quarter: 2012Q3

REPORT INFORMATION
  Report Type: 
  Country: None (occurrence: None)
  Receive Date: 20120725
  Receipt Date: 20120724
  Transmission Date: 20120928
  Serious: No
  Sender: FDA-Public Use
  Company Number: US-PFIZER INC-2012179377

PATIENT
  Sex: Female

DRUGS (2)
  1. EFFEXOR [Suspect]
     Dosage: 150 MG, DAILY
     Dates: start: 20120724
  2. EFFEXOR [Suspect]
     Dosage: 150 MG, DAILY
     Dates: end: 20120723

REACTIONS (1)
  - DIZZINESS [None]
